FAERS Safety Report 5425747-X (Version None)
Quarter: 2007Q3

REPORT INFORMATION
  Report Type: 
  Country: None (occurrence: None)
  Receive Date: 20070731
  Receipt Date: 20070404
  Transmission Date: 20080115
  Serious: No
  Sender: FDA-Public Use
  Company Number: 2007PV031955

PATIENT
  Age: 75 Year
  Sex: Female

DRUGS (6)
  1. EXENATIDE(EXENATIDE) PEN,DISPOSABLE [Suspect]
     Indication: TYPE 2 DIABETES MELLITUS
     Dosage: 5 UG, 2/D, SUBCUTANEOUS
     Route: 058
     Dates: start: 20070219
  2. GLIPIZIDE [Concomitant]
  3. SYNTHROID [Concomitant]
  4. LISINOPRIL [Concomitant]
  5. GLIPIZIDE [Concomitant]
  6. ASPIRIN [Concomitant]

REACTIONS (8)
  - BLOOD GLUCOSE DECREASED [None]
  - BLOOD GLUCOSE INCREASED [None]
  - DECREASED APPETITE [None]
  - DIARRHOEA [None]
  - DIZZINESS [None]
  - HYPERCHLORHYDRIA [None]
  - NAUSEA [None]
  - VISION BLURRED [None]
